FAERS Safety Report 16568009 (Version 1)
Quarter: 2019Q3

REPORT INFORMATION
  Report Type: Spontaneous
  Country: DE (occurrence: DE)
  Receive Date: 20190712
  Receipt Date: 20190712
  Transmission Date: 20191004
  Serious: Yes (Hospitalization)
  Sender: FDA-Public Use
  Company Number: DE-TEVA-2019-DE-1075849

PATIENT
  Age: 61 Year
  Sex: Male

DRUGS (5)
  1. ALLOPURINOL. [Concomitant]
     Active Substance: ALLOPURINOL
     Dosage: 300 MG, 0-0-0.5-0
  2. TORASEMID [Suspect]
     Active Substance: TORSEMIDE
     Dosage: 10 MG, 0.5-0-0-0
  3. CONCOR 10 PLUS (BISOPROLOL FUMARATE\HYDROCHLOROTHIAZIDE) [Suspect]
     Active Substance: BISOPROLOL FUMARATE\HYDROCHLOROTHIAZIDE
     Dosage: 10|25 MG, 1-0-0-0
  4. PERINDOPRIL [Suspect]
     Active Substance: PERINDOPRIL
     Dosage: 5 MG, 1-0-0-0
  5. CLEXANE [Concomitant]
     Active Substance: ENOXAPARIN SODIUM
     Dosage: 0.6 ML, 0-0-1-0
     Route: 058

REACTIONS (2)
  - General physical health deterioration [Unknown]
  - Hyponatraemia [Unknown]
